FAERS Safety Report 5823691-7 (Version None)
Quarter: 2008Q3

REPORT INFORMATION
  Report Type: 
  Country: None (occurrence: None)
  Receive Date: 20080725
  Receipt Date: 20080717
  Transmission Date: 20090109
  Serious: Yes (Death, Other)
  Sender: FDA-Public Use
  Company Number: HQWYE698902AUG04

PATIENT
  Sex: Female
  Weight: 50.5 kg

DRUGS (2)
  1. PREMARIN [Suspect]
     Indication: HORMONE REPLACEMENT THERAPY
     Dosage: UNKNOWN
     Dates: start: 19920101, end: 19980101
  2. PROVERA [Suspect]

REACTIONS (1)
  - OVARIAN CANCER [None]
